FAERS Safety Report 18997228 (Version 2)
Quarter: 2021Q1

REPORT INFORMATION
  Report Type: Report from Study
  Country: BD (occurrence: BD)
  Receive Date: 20210311
  Receipt Date: 20210318
  Transmission Date: 20210420
  Serious: Yes (Death)
  Sender: FDA-Public Use
  Company Number: NVSC2021BD056039

PATIENT
  Age: 55 Year
  Sex: Male
  Weight: 75 kg

DRUGS (1)
  1. SANDIMMUN NEORAL [Suspect]
     Active Substance: CYCLOSPORINE
     Indication: ANAEMIA
     Dosage: 100 MG, BID
     Route: 048

REACTIONS (2)
  - Product use in unapproved indication [Unknown]
  - Haemoglobin decreased [Fatal]
